FAERS Safety Report 17973097 (Version 1)
Quarter: 2020Q3

REPORT INFORMATION
  Report Type: Spontaneous
  Country: US (occurrence: US)
  Receive Date: 20200702
  Receipt Date: 20200702
  Transmission Date: 20201103
  Serious: Yes (Other)
  Sender: FDA-Public Use
  Company Number: US-GLAXOSMITHKLINE-US2020GSK106139

PATIENT
  Age: 41 Year
  Sex: Male

DRUGS (9)
  1. ACICLOVIR [Suspect]
     Active Substance: ACYCLOVIR
     Indication: MENINGITIS BACTERIAL
     Dosage: UNK
     Dates: start: 20200318, end: 20200324
  2. CEFEPIME [Concomitant]
     Active Substance: CEFEPIME HYDROCHLORIDE
     Indication: MENINGITIS BACTERIAL
     Dosage: UNK
     Dates: start: 20200318
  3. DOLUTEGRAVIR + LAMIVUDINE [Concomitant]
     Active Substance: DOLUTEGRAVIR SODIUM\LAMIVUDINE
     Indication: HIV INFECTION
     Dosage: UNK
  4. CEFEPIME [Concomitant]
     Active Substance: CEFEPIME HYDROCHLORIDE
     Indication: MENINGOENCEPHALITIS HERPETIC
  5. AMPICILLIN [Concomitant]
     Active Substance: AMPICILLIN
     Indication: MENINGITIS BACTERIAL
     Dosage: UNK
     Dates: start: 20200318
  6. AMPICILLIN [Concomitant]
     Active Substance: AMPICILLIN
     Indication: MENINGOENCEPHALITIS HERPETIC
  7. ACICLOVIR [Suspect]
     Active Substance: ACYCLOVIR
     Indication: MENINGOENCEPHALITIS HERPETIC
  8. VANCOMYCIN [Suspect]
     Active Substance: VANCOMYCIN
     Indication: MENINGOENCEPHALITIS HERPETIC
  9. VANCOMYCIN [Suspect]
     Active Substance: VANCOMYCIN
     Indication: MENINGITIS BACTERIAL
     Dosage: UNK
     Dates: start: 20200318

REACTIONS (8)
  - Condition aggravated [Unknown]
  - Encephalopathy [Unknown]
  - Respiratory arrest [Unknown]
  - Tongue injury [Unknown]
  - Acute kidney injury [Recovered/Resolved]
  - Agitation [Unknown]
  - Eyelid ptosis [Unknown]
  - Generalised tonic-clonic seizure [Unknown]
